FAERS Safety Report 4660006-4 (Version None)
Quarter: 2005Q2

REPORT INFORMATION
  Report Type: 
  Country: None (occurrence: None)
  Receive Date: 20050512
  Receipt Date: 20050331
  Transmission Date: 20051028
  Serious: Yes (Hospitalization)
  Sender: FDA-Public Use
  Company Number: GB-BRISTOL-MYERS SQUIBB COMPANY-12916797

PATIENT
  Age: 48 Year
  Sex: Female
  Weight: 59 kg

DRUGS (4)
  1. PACLITAXEL [Suspect]
     Indication: BREAST CANCER
     Dates: start: 20050217, end: 20050217
  2. CYCLOPHOSPHAMIDE [Suspect]
     Indication: BREAST CANCER
     Dates: start: 20050120, end: 20050120
  3. GEMCITABINE [Suspect]
     Indication: BREAST CANCER
     Dates: start: 20050224, end: 20050224
  4. EPIRUBICIN [Suspect]
     Indication: BREAST CANCER
     Dates: start: 20050120, end: 20050120

REACTIONS (1)
  - ADVERSE EVENT [None]
